FAERS Safety Report 8180741-3 (Version None)
Quarter: 2012Q1

REPORT INFORMATION
  Report Type: 
  Country: None (occurrence: None)
  Receive Date: 20120302
  Receipt Date: 20120224
  Transmission Date: 20120608
  Serious: Yes (Other)
  Sender: FDA-Public Use
  Company Number: SE-UCBSA-052378

PATIENT
  Age: 56 Year
  Sex: Female

DRUGS (6)
  1. METHOTREXATE [Concomitant]
     Dosage: 20 MG
     Dates: start: 20050930
  2. NSAID [Concomitant]
     Dates: start: 20050930, end: 20070226
  3. NSAID [Concomitant]
     Dates: start: 20081117, end: 20100517
  4. ANTIMALARIA [Concomitant]
     Dosage: 200 MG
     Dates: start: 20060904
  5. CIMZIA [Suspect]
     Indication: RHEUMATOID ARTHRITIS
     Route: 058
     Dates: start: 20110127, end: 20110928
  6. NSAID [Concomitant]
     Dates: start: 20110127

REACTIONS (1)
  - PUSTULAR PSORIASIS [None]
